FAERS Safety Report 21625698 (Version 1)
Quarter: 2022Q4

REPORT INFORMATION
  Report Type: Spontaneous
  Country: US (occurrence: None)
  Receive Date: 20221122
  Receipt Date: 20221122
  Transmission Date: 20230112
  Serious: No
  Sender: FDA-Public Use
  Company Number: US-ROCHE-3159757

PATIENT
  Sex: Female

DRUGS (5)
  1. TRASTUZUMAB [Suspect]
     Active Substance: TRASTUZUMAB
     Indication: Breast cancer
     Route: 041
  2. XELODA [Suspect]
     Active Substance: CAPECITABINE
     Indication: Breast cancer female
     Route: 048
  3. XELODA [Suspect]
     Active Substance: CAPECITABINE
     Indication: Breast cancer
  4. TUKYSA [Suspect]
     Active Substance: TUCATINIB
     Indication: Breast cancer female
     Route: 065
  5. TUKYSA [Suspect]
     Active Substance: TUCATINIB
     Indication: Breast cancer

REACTIONS (9)
  - Pain in extremity [Unknown]
  - Skin erosion [Unknown]
  - Stomatitis [Unknown]
  - Contusion [Unknown]
  - Fall [Unknown]
  - Oedema [Unknown]
  - Peripheral swelling [Unknown]
  - Skin exfoliation [Unknown]
  - Tenderness [Unknown]
